FAERS Safety Report 6991902-0 (Version None)
Quarter: 2010Q3

REPORT INFORMATION
  Report Type: 
  Country: None (occurrence: None)
  Receive Date: 20100917
  Receipt Date: 20100907
  Transmission Date: 20110219
  Serious: Yes (Hospitalization)
  Sender: FDA-Public Use
  Company Number: SK-PFIZER INC-2010114639

PATIENT
  Age: 50 Year
  Sex: Female

DRUGS (2)
  1. CADUET [Suspect]
     Indication: HYPERLIPIDAEMIA
     Dosage: [10 MG ATORVASTATIN]/ [5 MG AMLODIPINE]
     Route: 048
     Dates: start: 20080101, end: 20100804
  2. CONCOR [Concomitant]
     Indication: ESSENTIAL HYPERTENSION
     Dosage: 5 MG, 1X/DAY
     Route: 048
     Dates: start: 20090101

REACTIONS (1)
  - LIVER DISORDER [None]
